FAERS Safety Report 5818933-8 (Version None)
Quarter: 2008Q3

REPORT INFORMATION
  Report Type: 
  Country: None (occurrence: None)
  Receive Date: 20080721
  Receipt Date: 20080721
  Transmission Date: 20090109
  Serious: Yes (Hospitalization)
  Sender: FDA-Public Use
  Company Number: None

PATIENT
  Sex: Male
  Weight: 84.1 kg

DRUGS (3)
  1. FLUOROURACIL [Suspect]
     Dosage: 2020 MG
  2. CISPLATIN [Suspect]
     Dosage: 148 MG
  3. ERBITUX [Suspect]
     Dosage: 492 MG

REACTIONS (14)
  - CHILLS [None]
  - COLITIS [None]
  - DEHYDRATION [None]
  - DIARRHOEA [None]
  - DIZZINESS [None]
  - DYSPNOEA [None]
  - DYSURIA [None]
  - FATIGUE [None]
  - HAEMOGLOBIN DECREASED [None]
  - HEADACHE [None]
  - HYPOPHAGIA [None]
  - ILEITIS [None]
  - PROCTALGIA [None]
  - PYREXIA [None]
